FAERS Safety Report 6168383-2 (Version None)
Quarter: 2009Q2

REPORT INFORMATION
  Report Type: 
  Country: None (occurrence: None)
  Receive Date: 20090427
  Receipt Date: 20090415
  Transmission Date: 20091009
  Serious: Yes (Life-Threatening, Hospitalization)
  Sender: FDA-Public Use
  Company Number: FR-PFIZER INC-2009198333

PATIENT

DRUGS (7)
  1. ALDACTONE [Suspect]
     Dosage: 25 MG, 1X/DAY
     Route: 048
  2. SELOZOK [Suspect]
     Dosage: 190 MG, 1X/DAY
     Route: 048
  3. PRAVASTATIN [Suspect]
     Dosage: 40 MG, 1X/DAY
     Route: 048
  4. FUROSEMID [Suspect]
     Dosage: 1.5 DF, 1X/DAY
     Route: 048
  5. PREVISCAN [Suspect]
     Dosage: 0.75 DF, 1X/DAY
     Route: 048
  6. PERINDOPRIL ERBUMINE [Suspect]
     Dosage: 2 MG, 1X/DAY
     Route: 048
  7. DIPROSONE [Concomitant]

REACTIONS (1)
  - THROMBOCYTOPENIA [None]
